FAERS Safety Report 20228786 (Version 1)
Quarter: 2021Q4

REPORT INFORMATION
  Report Type: Spontaneous
  Country: US (occurrence: US)
  Receive Date: 20211225
  Receipt Date: 20211225
  Transmission Date: 20220303
  Serious: No
  Sender: FDA-Public Use
  Company Number: US-SA-SAC20211222001266

PATIENT
  Sex: Female

DRUGS (4)
  1. DUPIXENT [Suspect]
     Active Substance: DUPILUMAB
     Indication: Dermatitis atopic
     Dosage: 300 MG/2ML
     Route: 058
     Dates: start: 20200312
  2. ENBREL [Concomitant]
     Active Substance: ETANERCEPT
  3. RINVOQ [Concomitant]
     Active Substance: UPADACITINIB
  4. ACTEMRA [Concomitant]
     Active Substance: TOCILIZUMAB

REACTIONS (1)
  - Injection site reaction [Not Recovered/Not Resolved]
